FAERS Safety Report 9110147 (Version 3)
Quarter: 2013Q2

REPORT INFORMATION
  Report Type: Spontaneous
  Country: JP (occurrence: JP)
  Receive Date: 20130222
  Receipt Date: 20130403
  Transmission Date: 20140414
  Serious: Yes (Other)
  Sender: FDA-Public Use
  Company Number: JP-JNJFOC-20130211548

PATIENT
  Age: 83 Year
  Sex: Male
  Weight: 55 kg

DRUGS (3)
  1. REMINYL [Suspect]
     Indication: DEMENTIA ALZHEIMER^S TYPE
     Route: 048
     Dates: start: 201205, end: 20130224
  2. AMPICILLIN [Suspect]
     Indication: PRODUCT USED FOR UNKNOWN INDICATION
     Route: 065
  3. DOPS [Concomitant]
     Route: 048
     Dates: start: 2012, end: 20130224

REACTIONS (5)
  - Pneumonia [Recovered/Resolved]
  - Tremor [Unknown]
  - Gait disturbance [Unknown]
  - Faecal incontinence [Unknown]
  - Drug eruption [Unknown]
